FAERS Safety Report 10151878 (Version 1)
Quarter: 2014Q2

REPORT INFORMATION
  Report Type: Spontaneous
  Country: US (occurrence: US)
  Receive Date: 20140505
  Receipt Date: 20140505
  Transmission Date: 20141212
  Serious: Yes (Hospitalization)
  Sender: FDA-Public Use
  Company Number: US-AMGEN-USASP2014031595

PATIENT
  Age: 62 Year
  Sex: Female

DRUGS (4)
  1. NEULASTA [Suspect]
     Indication: WHITE BLOOD CELL COUNT ABNORMAL
     Dosage: UNK
     Route: 065
     Dates: start: 20140424
  2. CYTOXAN [Concomitant]
     Indication: BREAST CANCER STAGE I
     Dosage: UNK
  3. METHOTREXATE [Concomitant]
     Indication: BREAST CANCER STAGE I
     Dosage: UNK
  4. FLUOROURACIL [Concomitant]
     Indication: BREAST CANCER STAGE I
     Dosage: UNK

REACTIONS (6)
  - Headache [Recovering/Resolving]
  - Eye pain [Recovering/Resolving]
  - Activities of daily living impaired [Unknown]
  - Aphagia [Unknown]
  - Nausea [Unknown]
  - White blood cell count increased [Unknown]
